FAERS Safety Report 5212389-4 (Version None)
Quarter: 2007Q1

REPORT INFORMATION
  Report Type: 
  Country: None (occurrence: None)
  Receive Date: 20070118
  Receipt Date: 20070108
  Transmission Date: 20070707
  Serious: Yes (Other)
  Sender: FDA-Public Use
  Company Number: NL-PFIZER INC-2006077504

PATIENT
  Sex: Female

DRUGS (3)
  1. CELEBREX [Suspect]
     Indication: ABDOMINAL PAIN
     Route: 048
     Dates: start: 20060602, end: 20060603
  2. ALL OTHER THERAPEUTIC PRODUCTS [Concomitant]
     Dates: start: 20060602, end: 20060602
  3. NAPROXEN [Concomitant]
     Route: 048

REACTIONS (3)
  - DYSPNOEA [None]
  - ERYTHEMA [None]
  - LAPAROSCOPY [None]
